FAERS Safety Report 13188218 (Version 1)
Quarter: 2017Q1

REPORT INFORMATION
  Report Type: Spontaneous
  Country: RU (occurrence: RU)
  Receive Date: 20170206
  Receipt Date: 20170206
  Transmission Date: 20170428
  Serious: Yes (Life-Threatening)
  Sender: FDA-Public Use
  Company Number: RU-ASTRAZENECA-2017SE11302

PATIENT
  Age: 41 Year
  Sex: Male

DRUGS (6)
  1. TRICOR [Concomitant]
     Active Substance: FENOFIBRATE
     Indication: DIABETIC RETINOPATHY
     Dosage: 145.0MG UNKNOWN
  2. GALVUS [Concomitant]
     Active Substance: VILDAGLIPTIN
     Dates: start: 20150827
  3. DAPAGLIFLOZIN [Suspect]
     Active Substance: DAPAGLIFLOZIN
     Dosage: 10.0MG UNKNOWN
     Route: 048
     Dates: start: 20150829
  4. GLUCOPHAGE LONG [Concomitant]
  5. GLUCOPHAGE LONG [Concomitant]
     Dates: start: 20150827
  6. GALVUS [Concomitant]
     Active Substance: VILDAGLIPTIN

REACTIONS (1)
  - Diabetic ketoacidosis [Recovered/Resolved]
